FAERS Safety Report 14288988 (Version 1)
Quarter: 2017Q4

REPORT INFORMATION
  Report Type: Report from Study
  Country: CO (occurrence: CO)
  Receive Date: 20171215
  Receipt Date: 20171215
  Transmission Date: 20180321
  Serious: Yes (Death, Life-Threatening, Hospitalization)
  Sender: FDA-Public Use
  Company Number: CO-AMGEN-COLSL2017186041

PATIENT
  Age: 51 Year
  Sex: Female

DRUGS (1)
  1. KYPROLIS [Suspect]
     Active Substance: CARFILZOMIB
     Indication: PLASMA CELL MYELOMA
     Dosage: 27 MG, UNK (OTHER)
     Route: 042
     Dates: start: 20160927, end: 20171110

REACTIONS (2)
  - Fluid overload [Fatal]
  - Laryngitis [Fatal]

NARRATIVE: CASE EVENT DATE: 20171127
